FAERS Safety Report 6883456-4 (Version None)
Quarter: 2010Q3

REPORT INFORMATION
  Report Type: 
  Country: None (occurrence: None)
  Receive Date: 20100708
  Receipt Date: 20100208
  Transmission Date: 20110219
  Serious: Yes (Other)
  Sender: FDA-Public Use
  Company Number: 2009285056

PATIENT
  Age: 57 Year
  Sex: Male
  Weight: 91.5 kg

DRUGS (1)
  1. CHANTIX [Suspect]
     Indication: TOBACCO ABUSE
     Dosage: 0.5 MG, 1X/DAY
     Dates: start: 20090220, end: 20090312

REACTIONS (4)
  - COGNITIVE DISORDER [None]
  - DIZZINESS [None]
  - JUDGEMENT IMPAIRED [None]
  - VISION BLURRED [None]
